FAERS Safety Report 7668321-7 (Version None)
Quarter: 2011Q3

REPORT INFORMATION
  Report Type: 
  Country: None (occurrence: None)
  Receive Date: 20110808
  Receipt Date: 20110803
  Transmission Date: 20111222
  Serious: Yes (Death, Hospitalization, Other)
  Sender: FDA-Public Use
  Company Number: US-AMGEN-USASP2011002900

PATIENT
  Age: 69 Year
  Sex: Male
  Weight: 110 kg

DRUGS (22)
  1. RITUXAN [Concomitant]
  2. PROTONIX [Concomitant]
  3. DECADRON [Concomitant]
  4. COLCHICINE [Concomitant]
  5. NPLATE [Suspect]
     Indication: IDIOPATHIC THROMBOCYTOPENIC PURPURA
     Dosage: 3 A?G/KG, UNK
     Dates: start: 20100427, end: 20110216
  6. ANTINEOPLASTIC AGENTS [Concomitant]
  7. ALLOPURINOL [Concomitant]
  8. CELEXA [Concomitant]
  9. LISINOPRIL [Concomitant]
  10. MULTI VITAMIN AND MINERAL + SELENIUM [Concomitant]
  11. IMMUNOGLOBULINS [Concomitant]
  12. FERROUS SULFATE TAB [Concomitant]
  13. PLATELETS [Concomitant]
  14. COREG [Concomitant]
  15. FISH OIL [Concomitant]
  16. LORATADINE [Concomitant]
  17. PREDNISONE [Concomitant]
     Dosage: 5 MG, TID
     Route: 048
     Dates: start: 20100413
  18. DANAZOL [Concomitant]
  19. AMLODIPINE [Concomitant]
  20. NIACIN [Concomitant]
  21. LORTAB [Concomitant]
  22. CYTOXAN [Concomitant]

REACTIONS (19)
  - PULMONARY CAVITATION [None]
  - DYSPNOEA [None]
  - CARDIO-RESPIRATORY ARREST [None]
  - OEDEMA [None]
  - PNEUMONIA [None]
  - SEPSIS [None]
  - PALLOR [None]
  - PURPURA [None]
  - HAEMORRHAGE [None]
  - ASTHENIA [None]
  - FATIGUE [None]
  - CONNECTIVE TISSUE DISORDER [None]
  - HAEMOLYTIC ANAEMIA [None]
  - BONE MARROW RETICULIN FIBROSIS [None]
  - ANTINUCLEAR ANTIBODY [None]
  - THROMBOCYTOPENIA [None]
  - DRUG INEFFECTIVE [None]
  - CONSTIPATION [None]
  - HEADACHE [None]
